FAERS Safety Report 25797817 (Version 1)
Quarter: 2025Q3

REPORT INFORMATION
  Report Type: Spontaneous
  Country: US (occurrence: US)
  Receive Date: 20250912
  Receipt Date: 20250912
  Transmission Date: 20251020
  Serious: Yes (Hospitalization, Other)
  Sender: Vantive US Healthcare
  Company Number: US-VANTIVE-2025VAN004177

PATIENT
  Age: 79 Year
  Sex: Male

DRUGS (6)
  1. EXTRANEAL [Suspect]
     Active Substance: CALCIUM CHLORIDE\ICODEXTRIN\MAGNESIUM CHLORIDE\SODIUM CHLORIDE\SODIUM LACTATE
     Route: 033
  2. DEXTROSE [Suspect]
     Active Substance: DEXTROSE MONOHYDRATE
     Route: 033
  3. DEXTROSE [Suspect]
     Active Substance: DEXTROSE MONOHYDRATE
     Route: 033
  4. DEXTROSE [Suspect]
     Active Substance: DEXTROSE MONOHYDRATE
     Route: 033
  5. CALCIUM [Suspect]
     Active Substance: CALCIUM
     Route: 065
  6. MAGNESIUM [Suspect]
     Active Substance: MAGNESIUM
     Route: 033

REACTIONS (10)
  - Hyperhidrosis [Recovered/Resolved]
  - Fall [Recovered/Resolved]
  - Hyperkalaemia [Recovered/Resolved]
  - Vomiting [Recovered/Resolved]
  - Hypoglycaemia [Recovered/Resolved]
  - Dizziness [Recovered/Resolved]
  - Abdominal distension [Recovered/Resolved]
  - Vision blurred [Recovered/Resolved]
  - Fall [Recovered/Resolved]
  - Treatment noncompliance [Unknown]

NARRATIVE: CASE EVENT DATE: 20250824
